FAERS Safety Report 11351099 (Version 1)
Quarter: 2015Q3

REPORT INFORMATION
  Report Type: Spontaneous
  Country: US (occurrence: US)
  Receive Date: 20150807
  Receipt Date: 20150807
  Transmission Date: 20151125
  Serious: No
  Sender: FDA-Public Use
  Company Number: US-JNJFOC-20140919462

PATIENT

DRUGS (7)
  1. MULTI VIT [Concomitant]
     Indication: ROUTINE HEALTH MAINTENANCE
     Route: 065
  2. ROGAINE UNSPECIFIED [Suspect]
     Active Substance: MINOXIDIL
     Indication: HAIR GROWTH ABNORMAL
     Dosage: AS DIRECTED
     Route: 061
  3. MULTIPLE MEDICATIONS, NOS [Concomitant]
     Indication: PRODUCT USED FOR UNKNOWN INDICATION
     Route: 065
  4. UNSPECIFIED EYE MEDICATION [Concomitant]
     Indication: PRODUCT USED FOR UNKNOWN INDICATION
     Route: 065
  5. ROGAINE UNSPECIFIED [Suspect]
     Active Substance: MINOXIDIL
     Route: 061
  6. ROGAINE FOAM [Suspect]
     Active Substance: MINOXIDIL
     Route: 061
  7. ROGAINE FOAM [Suspect]
     Active Substance: MINOXIDIL
     Indication: HAIR GROWTH ABNORMAL
     Dosage: AS DIRECTED
     Route: 061

REACTIONS (2)
  - Rectal discharge [Not Recovered/Not Resolved]
  - Drug administration error [Unknown]
